FAERS Safety Report 10060165 (Version 1)
Quarter: 2014Q2

REPORT INFORMATION
  Report Type: Spontaneous
  Country: ES (occurrence: ES)
  Receive Date: 20140404
  Receipt Date: 20140404
  Transmission Date: 20141212
  Serious: Yes (Other)
  Sender: FDA-Public Use
  Company Number: PHHY2014ES039413

PATIENT
  Age: 35 Year
  Sex: Male

DRUGS (6)
  1. ZONISAMIDE [Suspect]
     Dosage: 300 MG, PER DAY
  2. ZONISAMIDE [Suspect]
     Dosage: 400 MG, PER DAY
  3. ZONISAMIDE [Suspect]
     Dosage: 300 MG, PER DAY
  4. ZONISAMIDE [Suspect]
     Dosage: 200 MG, PER DAY
  5. LEVETIRACETAM [Suspect]
     Dosage: 3000 MG, PER DAY
  6. PHENYTOIN [Concomitant]
     Dosage: 300 MG, PER DAY

REACTIONS (2)
  - Jealous delusion [Recovered/Resolved]
  - Drug ineffective [Unknown]
